FAERS Safety Report 19117388 (Version 1)
Quarter: 2021Q2

REPORT INFORMATION
  Report Type: Spontaneous
  Country: JP (occurrence: JP)
  Receive Date: 20210409
  Receipt Date: 20210409
  Transmission Date: 20210717
  Serious: Yes (Death)
  Sender: FDA-Public Use
  Company Number: JP-ASTRAZENECA-2021A275493

PATIENT
  Age: 75 Year
  Sex: Female

DRUGS (1)
  1. LYNPARZA [Suspect]
     Active Substance: OLAPARIB
     Indication: OVARIAN CANCER RECURRENT
     Dosage: DOSE UNKNOWN
     Route: 048

REACTIONS (3)
  - COVID-19 [Fatal]
  - Platelet count decreased [Unknown]
  - Anaemia [Unknown]
